FAERS Safety Report 11493830 (Version 1)
Quarter: 2015Q3

REPORT INFORMATION
  Report Type: Spontaneous
  Country: US (occurrence: US)
  Receive Date: 20150911
  Receipt Date: 20150911
  Transmission Date: 20151125
  Serious: No
  Sender: FDA-Public Use
  Company Number: US-ROCHE-1017279

PATIENT
  Sex: Female

DRUGS (2)
  1. RIBAVIRIN. [Suspect]
     Active Substance: RIBAVIRIN
     Indication: HEPATITIS C
     Route: 048
  2. PEGASYS [Suspect]
     Active Substance: PEGINTERFERON ALFA-2A
     Indication: HEPATITIS C
     Route: 058
     Dates: start: 20111010

REACTIONS (16)
  - Weight decreased [Unknown]
  - Back pain [Unknown]
  - Mucosal dryness [Unknown]
  - Dry skin [Unknown]
  - Pruritus [Unknown]
  - Abdominal pain [Unknown]
  - Constipation [Unknown]
  - Decreased appetite [Unknown]
  - Headache [Unknown]
  - Pain [Unknown]
  - Dry mouth [Unknown]
  - Insomnia [Unknown]
  - Alopecia [Unknown]
  - Vaginal haemorrhage [Unknown]
  - Epistaxis [Unknown]
  - Stomatitis [Unknown]
